FAERS Safety Report 11174554 (Version 1)
Quarter: 2015Q2

REPORT INFORMATION
  Report Type: Spontaneous
  Country: US (occurrence: US)
  Receive Date: 20150609
  Receipt Date: 20150609
  Transmission Date: 20150821
  Serious: Yes (Other)
  Sender: FDA-Public Use
  Company Number: US-AMGEN-USASP2015040264

PATIENT
  Age: 26 Year
  Sex: Male

DRUGS (1)
  1. BLINCYTO [Suspect]
     Active Substance: BLINATUMOMAB
     Indication: ACUTE LYMPHOCYTIC LEUKAEMIA
     Dosage: 18 MUG, UNK
     Route: 065
     Dates: start: 20150423

REACTIONS (8)
  - Pancreatitis acute [Unknown]
  - Body temperature abnormal [Unknown]
  - Appendicitis [Unknown]
  - Tachycardia [Unknown]
  - Hypotension [Unknown]
  - Malignant neoplasm progression [Unknown]
  - Medication error [Unknown]
  - Colitis [Unknown]

NARRATIVE: CASE EVENT DATE: 2015
